FAERS Safety Report 16022037 (Version 1)
Quarter: 2019Q2

REPORT INFORMATION
  Report Type: Spontaneous
  Country: US (occurrence: US)
  Receive Date: 20190301
  Receipt Date: 20190301
  Transmission Date: 20190711
  Serious: Yes (Other)
  Sender: FDA-Public Use
  Company Number: None

PATIENT
  Age: 57 Year
  Sex: Female
  Weight: 67.5 kg

DRUGS (7)
  1. SUBOXONE [Concomitant]
     Active Substance: BUPRENORPHINE HYDROCHLORIDE\NALOXONE HYDROCHLORIDE
  2. BACLOFEN 10 MG TABLETS [Suspect]
     Active Substance: BACLOFEN
     Indication: SYSTEMIC LUPUS ERYTHEMATOSUS
     Dosage: ?          QUANTITY:2 TABLET(S);?
     Route: 048
     Dates: start: 20180129, end: 20190206
  3. CLONAZEPAM. [Concomitant]
     Active Substance: CLONAZEPAM
  4. BACLOFEN 10 MG TABLETS [Suspect]
     Active Substance: BACLOFEN
     Indication: MULTIPLE SCLEROSIS
     Dosage: ?          QUANTITY:2 TABLET(S);?
     Route: 048
     Dates: start: 20180129, end: 20190206
  5. CYMBALTA [Concomitant]
     Active Substance: DULOXETINE HYDROCHLORIDE
  6. LEVOTHYROXINE. [Concomitant]
     Active Substance: LEVOTHYROXINE
  7. FAMOTIDINE. [Concomitant]
     Active Substance: FAMOTIDINE

REACTIONS (15)
  - Insomnia [None]
  - Crying [None]
  - Hyperhidrosis [None]
  - Dysphagia [None]
  - Muscle tightness [None]
  - Palpitations [None]
  - Musculoskeletal pain [None]
  - Hallucination, auditory [None]
  - Pallor [None]
  - Finger deformity [None]
  - Nightmare [None]
  - Dyspnoea [None]
  - Liver tenderness [None]
  - Tremor [None]
  - Nausea [None]

NARRATIVE: CASE EVENT DATE: 20190129
